FAERS Safety Report 8201859-2 (Version None)
Quarter: 2012Q1

REPORT INFORMATION
  Report Type: 
  Country: None (occurrence: None)
  Receive Date: 20120312
  Receipt Date: 20100721
  Transmission Date: 20120608
  Serious: No
  Sender: FDA-Public Use
  Company Number: US-BAYER-201028831NA

PATIENT
  Age: 34 Year
  Sex: Female

DRUGS (1)
  1. MIRENA [Suspect]
     Indication: CONTRACEPTION
     Dosage: FREQUENCY: CONTINUOUS
     Route: 015
     Dates: start: 20100716

REACTIONS (5)
  - HEADACHE [None]
  - MOOD SWINGS [None]
  - DEPRESSED MOOD [None]
  - EMOTIONAL DISORDER [None]
  - PREGNANCY WITH CONTRACEPTIVE DEVICE [None]
